FAERS Safety Report 13011733 (Version 1)
Quarter: 2016Q4

REPORT INFORMATION
  Report Type: Spontaneous
  Country: ES (occurrence: ES)
  Receive Date: 20161209
  Receipt Date: 20161209
  Transmission Date: 20170207
  Serious: Yes (Congenital Anomaly, Other)
  Sender: FDA-Public Use
  Company Number: ES-SUN PHARMACEUTICAL INDUSTRIES LTD-2016R1-128896

PATIENT

DRUGS (1)
  1. TOPIRAMATE. [Suspect]
     Active Substance: TOPIRAMATE
     Indication: PARTIAL SEIZURES
     Dosage: 300 MG, DAILY
     Route: 064

REACTIONS (6)
  - Phalangeal agenesis [Unknown]
  - Limb hypoplasia congenital [Unknown]
  - Foetal exposure during pregnancy [Unknown]
  - Congenital oral malformation [Unknown]
  - Congenital foot malformation [Unknown]
  - Syndactyly [Unknown]
